FAERS Safety Report 7592542-5 (Version None)
Quarter: 2011Q3

REPORT INFORMATION
  Report Type: 
  Country: None (occurrence: None)
  Receive Date: 20110706
  Receipt Date: 20110630
  Transmission Date: 20111222
  Serious: Yes (Other)
  Sender: FDA-Public Use
  Company Number: US-PFIZER INC-2011147081

PATIENT
  Sex: Female
  Weight: 79.8 kg

DRUGS (2)
  1. PREMARIN [Suspect]
     Indication: OFF LABEL USE
     Dosage: UNK, 1X/DAY
     Dates: start: 20110606, end: 20110606
  2. PREMARIN [Suspect]
     Indication: CYSTITIS

REACTIONS (1)
  - THERMAL BURN [None]
